FAERS Safety Report 23976910 (Version 1)
Quarter: 2024Q2

REPORT INFORMATION
  Report Type: Spontaneous
  Country: CN (occurrence: CN)
  Receive Date: 20240614
  Receipt Date: 20240614
  Transmission Date: 20240716
  Serious: Yes (Hospitalization)
  Sender: FDA-Public Use
  Company Number: CN-Eisai-EC-2024-167544

PATIENT
  Age: 41 Year
  Sex: Male

DRUGS (7)
  1. LENVATINIB [Suspect]
     Active Substance: LENVATINIB
     Indication: Hepatic cancer stage III
     Route: 048
     Dates: start: 20221030, end: 20230103
  2. LENVATINIB [Suspect]
     Active Substance: LENVATINIB
     Route: 048
  3. OXALIPLATIN [Suspect]
     Active Substance: OXALIPLATIN
     Indication: Hepatic cancer stage III
     Route: 042
     Dates: start: 20221031, end: 20221216
  4. LEUCOVORIN [Suspect]
     Active Substance: LEUCOVORIN\LEUCOVORIN CALCIUM
     Indication: Hepatic cancer stage III
     Route: 042
     Dates: start: 20221031, end: 20221216
  5. FLUOROURACIL [Suspect]
     Active Substance: FLUOROURACIL
     Indication: Hepatic cancer stage III
     Dosage: 400 MG/M2 HEPATIC ARTERIAL BOLUS FOLLOWED WITH 2,400 MG/M2 HEPATIC ARTERIAL CONTINUOUS INFUSION FOR
     Route: 042
     Dates: start: 20221031, end: 20221216
  6. TISLELIZUMAB [Suspect]
     Active Substance: TISLELIZUMAB
     Indication: Hepatic cancer stage III
     Route: 042
     Dates: start: 20221031, end: 20221216
  7. TENOFOVIR ALAFENAMIDE FUMARATE [Concomitant]
     Active Substance: TENOFOVIR ALAFENAMIDE FUMARATE
     Indication: Antiviral treatment
     Route: 048
     Dates: start: 20221025

REACTIONS (1)
  - Upper gastrointestinal perforation [Recovered/Resolved]

NARRATIVE: CASE EVENT DATE: 20221224
